FAERS Safety Report 21774652 (Version 1)
Quarter: 2022Q4

REPORT INFORMATION
  Report Type: Spontaneous
  Country: IT (occurrence: IT)
  Receive Date: 20221224
  Receipt Date: 20221224
  Transmission Date: 20230112
  Serious: Yes (Other)
  Sender: FDA-Public Use
  Company Number: IT-MLMSERVICE-20221208-3968677-1

PATIENT
  Age: 57 Year
  Sex: Female

DRUGS (3)
  1. PACLITAXEL [Suspect]
     Active Substance: PACLITAXEL
     Indication: Endometrial adenocarcinoma
  2. DOSTARLIMAB [Concomitant]
     Active Substance: DOSTARLIMAB
     Indication: Endometrial adenocarcinoma
  3. CARBOPLATIN [Concomitant]
     Active Substance: CARBOPLATIN
     Indication: Endometrial adenocarcinoma

REACTIONS (7)
  - Hypotension [Unknown]
  - Vomiting [Unknown]
  - Oxygen saturation decreased [Unknown]
  - Hypersensitivity [Unknown]
  - Back pain [Unknown]
  - Feeling hot [Unknown]
  - Off label use [Unknown]
